FAERS Safety Report 20314262 (Version 1)
Quarter: 2022Q1

REPORT INFORMATION
  Report Type: Spontaneous
  Country: US (occurrence: US)
  Receive Date: 20220109
  Receipt Date: 20220109
  Transmission Date: 20220423
  Serious: No
  Sender: FDA-Public Use
  Company Number: US-SANOFI-00919865

PATIENT
  Sex: Male

DRUGS (1)
  1. DUPIXENT [Suspect]
     Active Substance: DUPILUMAB

REACTIONS (5)
  - Malaise [Unknown]
  - COVID-19 [Unknown]
  - Movement disorder [Unknown]
  - Dizziness [Unknown]
  - SARS-CoV-2 test positive [Unknown]
